FAERS Safety Report 4963698-5 (Version None)
Quarter: 2006Q1

REPORT INFORMATION
  Report Type: 
  Country: None (occurrence: None)
  Receive Date: 20060330
  Receipt Date: 20060303
  Transmission Date: 20060701
  Serious: Yes (Death, Other)
  Sender: FDA-Public Use
  Company Number: 2005145558

PATIENT
  Age: 39 Year
  Sex: Female
  Weight: 79.3795 kg

DRUGS (10)
  1. NEURONTIN [Suspect]
     Indication: BIPOLAR DISORDER
  2. XANAX [Suspect]
     Indication: DEPRESSION
  3. LITHIUM (LITHIUM) [Suspect]
     Indication: BIPOLAR DISORDER
  4. ZOLOFT [Suspect]
     Indication: ILL-DEFINED DISORDER
  5. METHADONE HCL [Suspect]
     Indication: ILL-DEFINED DISORDER
  6. SEROQUEL [Suspect]
     Indication: INSOMNIA
  7. TYLENOL [Concomitant]
  8. PROMETHAZINE [Concomitant]
  9. HYDROCODONE BITARTRATE [Concomitant]
  10. COCAINE (COCAINE) [Concomitant]

REACTIONS (9)
  - COMPLETED SUICIDE [None]
  - DROOLING [None]
  - DRUG INEFFECTIVE [None]
  - DRUG TOXICITY [None]
  - DYSARTHRIA [None]
  - HOMICIDAL IDEATION [None]
  - MULTIPLE DRUG OVERDOSE [None]
  - RESPIRATORY ARREST [None]
  - SOMNOLENCE [None]
